FAERS Safety Report 8606810 (Version 5)
Quarter: 2014Q1

REPORT INFORMATION
  Report Type: Spontaneous
  Country: US (occurrence: US)
  Receive Date: 20120611
  Receipt Date: 20140129
  Transmission Date: 20141002
  Serious: Yes (Hospitalization, Disabling)
  Sender: FDA-Public Use
  Company Number: US-ASTRAZENECA-2012SE36237

PATIENT
  Age: 16539 Day
  Sex: Female
  Weight: 63.5 kg

DRUGS (25)
  1. NEXIUM [Suspect]
     Indication: GASTROOESOPHAGEAL REFLUX DISEASE
     Route: 048
     Dates: start: 1998
  2. NEXIUM [Suspect]
     Indication: GASTRIC DISORDER
     Route: 048
     Dates: start: 1998
  3. NEXIUM [Suspect]
     Indication: GASTROOESOPHAGEAL REFLUX DISEASE
     Route: 048
     Dates: start: 20031110
  4. NEXIUM [Suspect]
     Indication: GASTRIC DISORDER
     Route: 048
     Dates: start: 20031110
  5. NEXIUM [Suspect]
     Indication: GASTROOESOPHAGEAL REFLUX DISEASE
     Route: 048
     Dates: start: 201001
  6. NEXIUM [Suspect]
     Indication: GASTRIC DISORDER
     Route: 048
     Dates: start: 201001
  7. METOPROLOL SUCCINATE [Concomitant]
     Route: 048
  8. TAGAMET [Concomitant]
  9. PEPCID [Concomitant]
  10. MYLANTA [Concomitant]
  11. LODINE [Concomitant]
  12. CALCIUM, VITAMIN D [Concomitant]
  13. CHLORZOXAZONE [Concomitant]
  14. FLECAINIDE ACETATE [Concomitant]
  15. NAPROXEN EC [Concomitant]
  16. GABAPENTIN [Concomitant]
  17. TRAMADOL [Concomitant]
  18. CYCLOBENZAPRINE [Concomitant]
  19. LISINOPRIL HCTZ [Concomitant]
     Dosage: 20-12.5 MG
  20. LISINOPRIL HCTZ [Concomitant]
     Dosage: 10 MG DAILY
     Dates: start: 201001
  21. FLEXERIL [Concomitant]
     Dosage: 5 MG
     Dates: start: 201001
  22. IBUPROFEN [Concomitant]
     Indication: PAIN
     Dosage: 600 MG PRN
     Dates: start: 201001
  23. LISINOPRIL [Concomitant]
  24. HCTZ [Concomitant]
  25. ASA [Concomitant]

REACTIONS (4)
  - Fall [Unknown]
  - Fractured coccyx [Unknown]
  - Osteoporosis [Unknown]
  - Back pain [Unknown]
